FAERS Safety Report 25602949 (Version 1)
Quarter: 2025Q3

REPORT INFORMATION
  Report Type: Spontaneous
  Country: EU (occurrence: EU)
  Receive Date: 20250724
  Receipt Date: 20250724
  Transmission Date: 20251021
  Serious: Yes (Other)
  Sender: BRISTOL-MYERS SQUIBB COMPANY
  Company Number: EU-BRISTOL-MYERS SQUIBB COMPANY-2025-094232

PATIENT
  Age: 53 Year
  Sex: Male

DRUGS (2)
  1. ELIQUIS [Suspect]
     Active Substance: APIXABAN
     Indication: Cerebral venous sinus thrombosis
     Dates: end: 202412
  2. ELIQUIS [Suspect]
     Active Substance: APIXABAN
     Indication: Thrombophlebitis
     Dates: start: 202412

REACTIONS (3)
  - Off label use [Unknown]
  - Wrong technique in product usage process [Unknown]
  - Thrombosis [Unknown]

NARRATIVE: CASE EVENT DATE: 20241201
